FAERS Safety Report 6211246-4 (Version None)
Quarter: 2009Q2

REPORT INFORMATION
  Report Type: 
  Country: None (occurrence: None)
  Receive Date: 20090602
  Receipt Date: 20090522
  Transmission Date: 20091009
  Serious: Yes (Other)
  Sender: FDA-Public Use
  Company Number: PHEH2008US02622

PATIENT
  Sex: Female

DRUGS (3)
  1. AREDIA [Suspect]
  2. ZOMETA [Suspect]
  3. THALIDOMIDE [Concomitant]

REACTIONS (20)
  - ANXIETY [None]
  - AORTIC ARTERIOSCLEROSIS [None]
  - BONE DEBRIDEMENT [None]
  - DEFORMITY [None]
  - EMOTIONAL DISTRESS [None]
  - EYE PAIN [None]
  - FOOT FRACTURE [None]
  - HIP SURGERY [None]
  - INFECTION [None]
  - JOINT EFFUSION [None]
  - LERICHE SYNDROME [None]
  - OSTEOMYELITIS CHRONIC [None]
  - OSTEONECROSIS [None]
  - OSTEOPENIA [None]
  - PAIN [None]
  - PAIN IN EXTREMITY [None]
  - PERIPHERAL VASCULAR DISORDER [None]
  - STEM CELL TRANSPLANT [None]
  - SURGERY [None]
  - TOOTH EXTRACTION [None]
